FAERS Safety Report 4947891-3 (Version None)
Quarter: 2006Q1

REPORT INFORMATION
  Report Type: 
  Country: None (occurrence: None)
  Receive Date: 20060317
  Receipt Date: 20060317
  Transmission Date: 20060701
  Serious: Yes (Other)
  Sender: FDA-Public Use
  Company Number: None

PATIENT
  Age: 37 Year
  Sex: Female
  Weight: 76.2043 kg

DRUGS (1)
  1. AMBIEN CR [Suspect]
     Indication: INSOMNIA
     Dosage: 12.5 MG   ONCE AT BEDTIME   PO
     Route: 048
     Dates: start: 20060108, end: 20060112

REACTIONS (5)
  - AMNESIA [None]
  - CONDITION AGGRAVATED [None]
  - DEPRESSION [None]
  - DISSOCIATION [None]
  - SUICIDAL IDEATION [None]
